FAERS Safety Report 6099414-6 (Version None)
Quarter: 2009Q1

REPORT INFORMATION
  Report Type: 
  Country: None (occurrence: None)
  Receive Date: 20090303
  Receipt Date: 20090220
  Transmission Date: 20090719
  Serious: Yes (Disabling, Other)
  Sender: FDA-Public Use
  Company Number: JP-ASTRAZENECA-2009SE00915

PATIENT

DRUGS (2)
  1. AMIAS 16MG TABLETS [Suspect]
     Indication: HYPERTENSION
     Route: 048
     Dates: start: 20080530, end: 20081031
  2. TEMAZEPAM [Concomitant]
     Indication: INSOMNIA
     Route: 065

REACTIONS (2)
  - ANGIOEDEMA [None]
  - LIP SWELLING [None]
